FAERS Safety Report 5451446-4 (Version None)
Quarter: 2007Q3

REPORT INFORMATION
  Report Type: 
  Country: None (occurrence: None)
  Receive Date: 20070913
  Receipt Date: 20070910
  Transmission Date: 20080115
  Serious: Yes (Death, Other)
  Sender: FDA-Public Use
  Company Number: GR-BRISTOL-MYERS SQUIBB COMPANY-13904420

PATIENT

DRUGS (2)
  1. IFOSFAMIDE [Suspect]
     Indication: BREAST CANCER
     Dosage: 5-6G/M2 DIVIDED OVER DAYS 1+2
  2. DOCETAXEL [Suspect]
     Indication: BREAST CANCER
     Dosage: 70-100MG/M2

REACTIONS (10)
  - ACUTE HEPATIC FAILURE [None]
  - DIARRHOEA [None]
  - FEBRILE NEUTROPENIA [None]
  - FLUID RETENTION [None]
  - MYALGIA [None]
  - NAIL TOXICITY [None]
  - NEUROPATHY PERIPHERAL [None]
  - NEUROTOXICITY [None]
  - NEUTROPENIA [None]
  - SKIN TOXICITY [None]
